FAERS Safety Report 5519956-9 (Version None)
Quarter: 2007Q4

REPORT INFORMATION
  Report Type: 
  Country: None (occurrence: None)
  Receive Date: 20071116
  Receipt Date: 20061227
  Transmission Date: 20080405
  Serious: No
  Sender: FDA-Public Use
  Company Number: US-BRISTOL-MYERS SQUIBB COMPANY-13627856

PATIENT
  Age: 64 Year
  Sex: Female

DRUGS (1)
  1. CAPOZIDE TABS 50 MG/25 MG [Suspect]
     Dosage: DOSAGE: 50MG CAPTOPRIL/25MG HCTZ
     Route: 048

REACTIONS (2)
  - DRUG INEFFECTIVE [None]
  - PHARMACEUTICAL PRODUCT COMPLAINT [None]
